FAERS Safety Report 9570753 (Version 2)
Quarter: 2013Q4

REPORT INFORMATION
  Report Type: Report from Study
  Country: GB (occurrence: GB)
  Receive Date: 20131001
  Receipt Date: 20131101
  Transmission Date: 20140711
  Serious: Yes (Hospitalization)
  Sender: FDA-Public Use
  Company Number: GB-BRISTOL-MYERS SQUIBB COMPANY-19413780

PATIENT
  Age: 49 Year
  Sex: Female

DRUGS (6)
  1. IPILIMUMAB [Suspect]
     Indication: MALIGNANT MELANOMA
     Dosage: 17JUN13,05AUG13
     Route: 042
     Dates: start: 20130617, end: 20130805
  2. METFORMIN [Concomitant]
     Route: 048
     Dates: start: 20130708
  3. PROPRANOLOL [Concomitant]
     Route: 048
     Dates: start: 20110324
  4. HUMULIN I [Concomitant]
  5. HUMALOG [Concomitant]
  6. BUSCOPAN [Concomitant]
     Route: 048

REACTIONS (1)
  - Rectal haemorrhage [Recovered/Resolved with Sequelae]
